FAERS Safety Report 22279002 (Version 1)
Quarter: 2023Q2

REPORT INFORMATION
  Report Type: Spontaneous
  Country: NL (occurrence: NL)
  Receive Date: 20230503
  Receipt Date: 20230503
  Transmission Date: 20230722
  Serious: Yes (Other)
  Sender: FDA-Public Use
  Company Number: None

PATIENT
  Sex: Female
  Weight: 85 kg

DRUGS (5)
  1. TRIAMCINOLONE ACETONIDE [Suspect]
     Active Substance: TRIAMCINOLONE ACETONIDE
     Indication: Rheumatoid arthritis
     Dosage: 1XDD
     Route: 065
     Dates: start: 20230115
  2. CIPROFLOXACIN [Suspect]
     Active Substance: CIPROFLOXACIN
     Indication: Cystitis
     Dosage: EXTENDED BY 2XDD 5 DGN
     Route: 065
  3. CIPROFLOXACIN [Suspect]
     Active Substance: CIPROFLOXACIN
     Dosage: 3X DD 5 DGN,
     Route: 065
     Dates: start: 20230320
  4. OLUMIANT [Concomitant]
     Active Substance: BARICITINIB
     Dosage: TABLET, 4 MG (MILLIGRAM)
     Route: 065
  5. ENALAPRIL;LERCANIDIPINE [Concomitant]
     Dosage: TABLET, 10/10 MG (MILLIGRAM)
     Route: 065

REACTIONS (1)
  - Tendon rupture [Not Recovered/Not Resolved]

NARRATIVE: CASE EVENT DATE: 20230315
